FAERS Safety Report 12304428 (Version 5)
Quarter: 2016Q2

REPORT INFORMATION
  Report Type: Spontaneous
  Country: IT (occurrence: IT)
  Receive Date: 20160426
  Receipt Date: 20160623
  Transmission Date: 20160815
  Serious: Yes (Other)
  Sender: FDA-Public Use
  Company Number: IT-ACCORD-039657

PATIENT
  Age: 55 Year
  Sex: Female
  Weight: 61 kg

DRUGS (3)
  1. OXALIPLATIN. [Suspect]
     Active Substance: OXALIPLATIN
     Indication: ADENOCARCINOMA OF COLON
     Dosage: PT. ALSO RECEIVED OXALIPLATIN 110 MG AND 100 MG (FOLFOX REGIMEN)
     Route: 042
     Dates: start: 20151001
  2. LEDERFOLIN [Concomitant]
     Active Substance: LEUCOVORIN CALCIUM
     Indication: ADENOCARCINOMA OF COLON
     Dosage: FOLFOX REGIMEN
     Route: 042
     Dates: start: 20151001, end: 20160303
  3. FLUOROURACIL. [Suspect]
     Active Substance: FLUOROURACIL
     Indication: ADENOCARCINOMA OF COLON
     Dosage: 650 MG IV BOLUS AND 3900 MG INTRAVENOUS (FOLFOX REGIMEN)
     Route: 042
     Dates: start: 20151001

REACTIONS (10)
  - Pruritus generalised [Recovering/Resolving]
  - Thrombocytopenia [Not Recovered/Not Resolved]
  - Paraesthesia [Not Recovered/Not Resolved]
  - Dyspnoea exertional [Recovering/Resolving]
  - Abdominal pain upper [Recovered/Resolved]
  - Infusion related reaction [Recovered/Resolved]
  - Hyperglycaemia [Unknown]
  - Erythema [Recovered/Resolved]
  - Vomiting [Recovering/Resolving]
  - Neutropenia [Recovering/Resolving]

NARRATIVE: CASE EVENT DATE: 20151002
